FAERS Safety Report 7597889-4 (Version None)
Quarter: 2011Q3

REPORT INFORMATION
  Report Type: 
  Country: None (occurrence: None)
  Receive Date: 20110708
  Receipt Date: 20110630
  Transmission Date: 20111222
  Serious: Yes (Life-Threatening, Hospitalization)
  Sender: FDA-Public Use
  Company Number: JP-BRISTOL-MYERS SQUIBB COMPANY-15869142

PATIENT
  Sex: Male

DRUGS (2)
  1. BARACLUDE [Suspect]
     Indication: HEPATITIS B
     Dosage: INTERRUPTED FOR ABOUT ONE MONTH
     Route: 048
  2. ZETIA [Suspect]
     Indication: HYPERLIPIDAEMIA
     Route: 048

REACTIONS (3)
  - TRANSAMINASES INCREASED [None]
  - BLOOD UREA INCREASED [None]
  - RHABDOMYOLYSIS [None]
